FAERS Safety Report 19698083 (Version 1)
Quarter: 2021Q3

REPORT INFORMATION
  Report Type: Report from Study
  Country: US (occurrence: US)
  Receive Date: 20210812
  Receipt Date: 20210812
  Transmission Date: 20211014
  Serious: Yes (Other)
  Sender: FDA-Public Use
  Company Number: US-SUNOVION-2016SUN003761

PATIENT
  Sex: Male

DRUGS (1)
  1. BROVANA [Suspect]
     Active Substance: ARFORMOTEROL TARTRATE
     Dosage: UNKNOWN
     Route: 055

REACTIONS (6)
  - Chest pain [Unknown]
  - Chest discomfort [Unknown]
  - Feeling abnormal [Unknown]
  - Dyspnoea [Unknown]
  - Inappropriate schedule of product administration [Unknown]
  - Lung carcinoma cell type unspecified stage I [Unknown]
